FAERS Safety Report 6333236-3 (Version None)
Quarter: 2009Q3

REPORT INFORMATION
  Report Type: 
  Country: None (occurrence: None)
  Receive Date: 20090826
  Receipt Date: 20090810
  Transmission Date: 20100115
  Serious: Yes (Hospitalization)
  Sender: FDA-Public Use
  Company Number: 2009-1845

PATIENT
  Sex: Female

DRUGS (1)
  1. SOMATULINE AUTOGEL (LANREOTIDE) (LANREOTIDE ACETATE) [Suspect]
     Indication: ACROMEGALY
     Dosage: (NOT REPORTED, 1 IN 28 D); A COUPLE OF YEARS

REACTIONS (1)
  - CARDIAC DISORDER [None]
